FAERS Safety Report 8585699-0 (Version None)
Quarter: 2012Q3

REPORT INFORMATION
  Report Type: 
  Country: None (occurrence: None)
  Receive Date: 20120802
  Receipt Date: 20120802
  Transmission Date: 20120928
  Serious: Yes (Life-Threatening, Other)
  Sender: FDA-Public Use
  Company Number: None

PATIENT
  Sex: Female

DRUGS (5)
  1. NERUOTIN, [Concomitant]
  2. TRAZODONE HCL [Concomitant]
  3. BUTRANS [Suspect]
     Indication: INTERVERTEBRAL DISC PROTRUSION
     Dosage: 20MCG 7 DAY PATCH OTHER
     Route: 048
     Dates: start: 20120630, end: 20120630
  4. PAXIL [Concomitant]
  5. CLAZAPAM, [Concomitant]

REACTIONS (7)
  - ENURESIS [None]
  - SPEECH DISORDER [None]
  - FALL [None]
  - SLEEP TERROR [None]
  - DISORIENTATION [None]
  - AMNESIA [None]
  - ASTHENIA [None]
